FAERS Safety Report 8761382 (Version 1)
Quarter: 2012Q4

REPORT INFORMATION
  Report Type: 
  Country: KR (occurrence: KR)
  Receive Date: 20120828
  Receipt Date: 20120828
  Transmission Date: 20130627
  Serious: Yes (Other)
  Sender: FDA-Public Use
  Company Number: KR-PFIZER INC-2012205876

PATIENT
  Age: 49 Year
  Sex: Male

DRUGS (6)
  1. FLUOROURACIL [Suspect]
     Indication: GASTRIC CANCER
     Dosage: 410 mg daily
     Route: 042
  2. FERROUS SULFATE [Concomitant]
  3. ASPIRIN [Concomitant]
  4. FUROSEMIDE [Concomitant]
  5. CALCIUM CARBONATE [Concomitant]
  6. ERYTHROPOIETIN [Concomitant]

REACTIONS (1)
  - Toxic encephalopathy [Recovered/Resolved]
